FAERS Safety Report 7413720-1 (Version None)
Quarter: 2011Q2

REPORT INFORMATION
  Report Type: 
  Country: None (occurrence: None)
  Receive Date: 20110413
  Receipt Date: 20110408
  Transmission Date: 20111010
  Serious: Yes (Other)
  Sender: FDA-Public Use
  Company Number: DE-PFIZER INC-2011067797

PATIENT
  Age: 24 Year
  Sex: Male
  Weight: 96 kg

DRUGS (1)
  1. ZELDOX [Suspect]
     Dosage: 60 MG, 1X/DAY
     Route: 048
     Dates: start: 20090101

REACTIONS (3)
  - EXTRAPYRAMIDAL DISORDER [None]
  - DYSKINESIA [None]
  - TRISMUS [None]
